FAERS Safety Report 5876522-3 (Version None)
Quarter: 2008Q3

REPORT INFORMATION
  Report Type: 
  Country: None (occurrence: None)
  Receive Date: 20080910
  Receipt Date: 20080909
  Transmission Date: 20090109
  Serious: Yes (Other)
  Sender: FDA-Public Use
  Company Number: D0058665A

PATIENT
  Sex: Male

DRUGS (2)
  1. ARIXTRA [Suspect]
     Route: 065
     Dates: start: 20080907
  2. ORGARAN [Concomitant]
     Route: 065
     Dates: end: 20080907

REACTIONS (2)
  - CHROMATURIA [None]
  - POST PROCEDURAL HAEMORRHAGE [None]
